FAERS Safety Report 15280902 (Version 1)
Quarter: 2018Q3

REPORT INFORMATION
  Report Type: Spontaneous
  Country: US (occurrence: US)
  Receive Date: 20180815
  Receipt Date: 20180815
  Transmission Date: 20181010
  Serious: No
  Sender: FDA-Public Use
  Company Number: US-SYNERGY PHARMACEUTICALS INC-US-2018SNG000151

PATIENT

DRUGS (7)
  1. DOMPERIDONE [Concomitant]
     Active Substance: DOMPERIDONE
     Indication: GASTRIC DILATATION
     Dosage: UNK
     Route: 065
     Dates: start: 201806
  2. ACTIGALL [Concomitant]
     Active Substance: URSODIOL
     Indication: BILIARY TRACT DISORDER
     Dosage: ^OFF AND ON^
     Route: 065
     Dates: start: 2005
  3. CBD OIL [Concomitant]
     Active Substance: CANNABIDIOL
     Indication: SLEEP DEFICIT
     Dosage: UNK, AT NIGHT
     Route: 065
     Dates: start: 2018
  4. PROTONIX                           /00661201/ [Concomitant]
     Active Substance: OMEPRAZOLE
     Indication: GASTROOESOPHAGEAL REFLUX DISEASE
     Dosage: UNK
     Route: 065
  5. CBD OIL [Concomitant]
     Active Substance: CANNABIDIOL
     Indication: HEART RATE INCREASED
  6. TRULANCE [Suspect]
     Active Substance: PLECANATIDE
     Indication: IRRITABLE BOWEL SYNDROME
     Dosage: 3 MG, QD
     Route: 048
     Dates: start: 2017, end: 20180604
  7. ATENOLOL. [Concomitant]
     Active Substance: ATENOLOL
     Indication: HEART RATE INCREASED
     Dosage: UNK
     Route: 065
     Dates: start: 2016

REACTIONS (1)
  - Back pain [Not Recovered/Not Resolved]

NARRATIVE: CASE EVENT DATE: 2018
